FAERS Safety Report 8266650-X (Version None)
Quarter: 2012Q2

REPORT INFORMATION
  Report Type: 
  Country: None (occurrence: None)
  Receive Date: 20120407
  Receipt Date: 20120327
  Transmission Date: 20120825
  Serious: Yes (Hospitalization)
  Sender: FDA-Public Use
  Company Number: NZ-ASTRAZENECA-2012SE20814

PATIENT
  Age: 62 Year

DRUGS (1)
  1. BRILINTA [Suspect]
     Route: 048
     Dates: start: 20111123, end: 20120325

REACTIONS (1)
  - ANGINA PECTORIS [None]
